FAERS Safety Report 18188033 (Version 1)
Quarter: 2020Q3

REPORT INFORMATION
  Report Type: Spontaneous
  Country: DE (occurrence: DE)
  Receive Date: 20200824
  Receipt Date: 20200824
  Transmission Date: 20201103
  Serious: Yes (Hospitalization)
  Sender: FDA-Public Use
  Company Number: DE-TEVA-2020-DE-1817108

PATIENT
  Age: 75 Year
  Sex: Male

DRUGS (18)
  1. TORASEMID [Suspect]
     Active Substance: TORSEMIDE
     Dosage: 10 MG, 5?3?0?0
  2. AIRFLUSAL [Concomitant]
     Active Substance: FLUTICASONE FUROATE\SALMETEROL XINAFOATE
     Dosage: NK MG, 3X
  3. FINASTERID [Concomitant]
     Active Substance: FINASTERIDE
     Dosage: 5 MILLIGRAM DAILY;  1?0?0?0
  4. AMIODARONE [Suspect]
     Active Substance: AMIODARONE
     Dosage: 200 MILLIGRAM DAILY; 1?0?0?0
  5. TAMSULOSIN [Concomitant]
     Active Substance: TAMSULOSIN
     Dosage: .4 MILLIGRAM DAILY;  0?0?1?0
  6. TORASEMID [Suspect]
     Active Substance: TORSEMIDE
     Dosage: 30 MILLIGRAM DAILY;
  7. PRAMIPEXOL [Concomitant]
     Active Substance: PRAMIPEXOLE
     Dosage: 3.15 MILLIGRAM DAILY; 1?0?0?0
  8. STEGLUJAN 100MG/5MG [Concomitant]
     Dosage: 1 DOSAGE FORMS DAILY; 5|100 MG, 1?0?0?0
  9. RAMIPRIL. [Suspect]
     Active Substance: RAMIPRIL
     Dosage: 5 MILLIGRAM DAILY;  0?0?1?0
  10. APIXABAN [Concomitant]
     Active Substance: APIXABAN
     Dosage: 10 MILLIGRAM DAILY; 1?0?1?0
  11. METFORMIN [Concomitant]
     Active Substance: METFORMIN HYDROCHLORIDE
     Dosage: 1000 MILLIGRAM DAILY; 1?0?0?0
  12. CARVEDILOL. [Suspect]
     Active Substance: CARVEDILOL
     Dosage: 12.5 MILLIGRAM DAILY; 6.25 MG, 2?0?0?0
  13. AMANTADIN [Concomitant]
     Active Substance: AMANTADINE
     Dosage: 100 MILLIGRAM DAILY;
  14. MIRTAZAPIN [Concomitant]
     Active Substance: MIRTAZAPINE
     Dosage: 15 MG, 0?0?0?0.5
  15. RASAGILIN [Concomitant]
     Active Substance: RASAGILINE MESYLATE
     Dosage: 3 MILLIGRAM DAILY;
  16. LEVOTHYROXIN?NATRIUM [Concomitant]
     Active Substance: LEVOTHYROXINE SODIUM
     Dosage: 100 MICROGRAM DAILY; 1?0?0?0
  17. SALBUTAMOL [Concomitant]
     Active Substance: ALBUTEROL
     Dosage: NK MG, 3X
  18. ALLOPURINOL. [Concomitant]
     Active Substance: ALLOPURINOL
     Dosage: 300 MG, 0.5?0?0?0

REACTIONS (2)
  - Bradycardia [Unknown]
  - Dyspnoea [Unknown]
